FAERS Safety Report 20948386 (Version 3)
Quarter: 2022Q3

REPORT INFORMATION
  Report Type: Report from Study
  Country: GB (occurrence: GB)
  Receive Date: 20220611
  Receipt Date: 20220704
  Transmission Date: 20221027
  Serious: Yes (Other)
  Sender: FDA-Public Use
  Company Number: GB-UCBSA-2021043487

PATIENT
  Age: 25 Year
  Sex: Female
  Weight: 108.39 kg

DRUGS (12)
  1. CERTOLIZUMAB PEGOL [Suspect]
     Active Substance: CERTOLIZUMAB PEGOL
     Indication: Psoriasis
     Dosage: 400 MILLIGRAM, EV 2 WEEKS(QOW)
     Route: 058
     Dates: start: 20210908
  2. CERTOLIZUMAB PEGOL [Suspect]
     Active Substance: CERTOLIZUMAB PEGOL
     Dosage: 200 MILLIGRAM, EV 2 WEEKS(QOW)
     Route: 058
     Dates: end: 202201
  3. CERTOLIZUMAB PEGOL [Suspect]
     Active Substance: CERTOLIZUMAB PEGOL
     Dosage: 400 MILLIGRAM, EV 2 WEEKS(QOW)
     Route: 058
     Dates: start: 2022, end: 20220524
  4. ASPIRIN [Concomitant]
     Active Substance: ASPIRIN
     Indication: Body mass index increased
     Dosage: 75 MILLIGRAM, ONCE DAILY (QD)
     Route: 048
     Dates: start: 20210906
  5. METRONIDAZOLE [Concomitant]
     Active Substance: METRONIDAZOLE
     Indication: Infection
     Dosage: UNK
     Dates: start: 20220503, end: 20220508
  6. DALTEPARIN [Concomitant]
     Active Substance: DALTEPARIN
     Indication: Anticoagulant therapy
     Dosage: 7500 UNITS, ONCE DAILY (QD)
     Route: 058
     Dates: start: 20220223, end: 20220307
  7. BUPIVACAINE;MORPHINE [Concomitant]
     Indication: Spinal anaesthesia
     Dosage: UNK
     Dates: start: 20220222, end: 20220222
  8. ACETAMINOPHEN [Concomitant]
     Active Substance: ACETAMINOPHEN
     Indication: Pain management
     Dosage: 1 GRAM, ONCE DAILY (QD)
     Dates: start: 20220222, end: 20220225
  9. FLUCLOXACILLIN [Concomitant]
     Active Substance: FLUCLOXACILLIN
     Indication: Postoperative wound infection
     Dosage: UNK
     Dates: start: 20220307, end: 20220318
  10. PFIZER-BIONTECH COVID-19 VACCINE [Concomitant]
     Active Substance: TOZINAMERAN
     Indication: COVID-19 immunisation
     Dosage: UNK
     Dates: start: 20210626, end: 20210626
  11. PFIZER-BIONTECH COVID-19 VACCINE [Concomitant]
     Active Substance: TOZINAMERAN
     Dosage: UNK
     Dates: start: 20211113, end: 20211113
  12. TREMFYA [Concomitant]
     Active Substance: GUSELKUMAB
     Indication: Psoriasis
     Dosage: UNK
     Dates: start: 20190417, end: 20210505

REACTIONS (11)
  - Caesarean section [Unknown]
  - Polyhydramnios [Recovered/Resolved]
  - Postoperative wound infection [Recovered/Resolved]
  - Psoriasis [Not Recovered/Not Resolved]
  - COVID-19 [Recovered/Resolved]
  - Drug ineffective [Unknown]
  - Product availability issue [Unknown]
  - Therapy interrupted [Unknown]
  - COVID-19 immunisation [Unknown]
  - Maternal exposure during pregnancy [Unknown]
  - Maternal exposure during breast feeding [Unknown]

NARRATIVE: CASE EVENT DATE: 20210908
